FAERS Safety Report 7363130-0 (Version None)
Quarter: 2011Q1

REPORT INFORMATION
  Report Type: 
  Country: None (occurrence: None)
  Receive Date: 20110321
  Receipt Date: 20100813
  Transmission Date: 20110831
  Serious: Yes (Hospitalization)
  Sender: FDA-Public Use
  Company Number: US-BAYER-201013570NA

PATIENT
  Sex: Female
  Weight: 48 kg

DRUGS (8)
  1. DIURETICS [Concomitant]
  2. ANTIBIOTICS [Concomitant]
     Indication: URINARY TRACT INFECTION
  3. DITROPAN [Concomitant]
     Indication: URINARY TRACT INFECTION
  4. YAZ [Suspect]
     Dosage: UNK
     Dates: start: 20080801, end: 20090101
  5. NSAID'S [Concomitant]
  6. B AND O [Concomitant]
     Indication: URINARY TRACT INFECTION
  7. PHENTERMINE [Concomitant]
     Indication: DECREASED APPETITE
  8. YASMIN [Suspect]
     Indication: CONTRACEPTION
     Dosage: UNK UNK, QD
     Route: 048
     Dates: start: 20070801, end: 20080804

REACTIONS (1)
  - CEREBROVASCULAR ACCIDENT [None]
